FAERS Safety Report 10903110 (Version 2)
Quarter: 2017Q1

REPORT INFORMATION
  Report Type: Spontaneous
  Country: IN (occurrence: IN)
  Receive Date: 20150311
  Receipt Date: 20170103
  Transmission Date: 20170428
  Serious: Yes (Other)
  Sender: FDA-Public Use
  Company Number: IN-AUROBINDO-AUR-APL-2015-01872

PATIENT
  Age: 50 Year
  Sex: Male

DRUGS (2)
  1. TELMISARTAN. [Concomitant]
     Active Substance: TELMISARTAN
     Indication: HYPERTENSION
     Dosage: 80 MG, UNK
     Route: 065
  2. ESCITALOPRAM [Suspect]
     Active Substance: ESCITALOPRAM OXALATE
     Indication: PANIC ATTACK
     Dosage: 10 MG, UNK
     Route: 065

REACTIONS (9)
  - Altered state of consciousness [Unknown]
  - Inappropriate antidiuretic hormone secretion [Unknown]
  - Hypokalaemia [Unknown]
  - Hyponatraemia [Unknown]
  - Electroencephalogram abnormal [Unknown]
  - Urine sodium abnormal [Recovered/Resolved]
  - Vomiting [Unknown]
  - Hypochloraemia [Unknown]
  - Metabolic encephalopathy [Unknown]
